FAERS Safety Report 6705818-8 (Version None)
Quarter: 2010Q2

REPORT INFORMATION
  Report Type: 
  Country: None (occurrence: None)
  Receive Date: 20100503
  Receipt Date: 20100430
  Transmission Date: 20101027
  Serious: Yes (Death, Other)
  Sender: FDA-Public Use
  Company Number: US-ASTRAZENECA-2007UW14881

PATIENT
  Age: 16983 Day
  Sex: Female
  Weight: 90.7 kg

DRUGS (16)
  1. SEROQUEL [Suspect]
     Indication: INSOMNIA
     Route: 048
     Dates: start: 20000401
  2. SEROQUEL [Suspect]
     Route: 048
     Dates: start: 20050419
  3. NEURONTIN [Concomitant]
  4. LEXAPRO [Concomitant]
     Indication: MAJOR DEPRESSION
     Dosage: 20MG-40MG
     Route: 046
     Dates: start: 20050419
  5. PLAVIX [Concomitant]
     Dates: start: 20050419
  6. PLAVIX [Concomitant]
  7. ASPIRIN [Concomitant]
  8. TRICOR [Concomitant]
     Dosage: THREE TABLETS QHS
  9. DESYREL [Concomitant]
  10. LUVOX [Concomitant]
  11. ESTRADIOL [Concomitant]
     Dosage: TID QHS
  12. ATIVAN [Concomitant]
     Indication: MAJOR DEPRESSION
     Dosage: TID QHS
     Dates: start: 20060808
  13. ATIVAN [Concomitant]
     Indication: ANXIETY
     Dosage: TID QHS
     Dates: start: 20060808
  14. ATIVAN [Concomitant]
     Dosage: 1 MG Q 12HRS PO PRN
     Route: 048
     Dates: start: 20060701
  15. ATIVAN [Concomitant]
     Dosage: 1 MG Q 12HRS PO PRN
     Route: 048
     Dates: start: 20060701
  16. TOPAMAX [Concomitant]
     Route: 048
     Dates: start: 20060701

REACTIONS (6)
  - DIABETES MELLITUS INADEQUATE CONTROL [None]
  - DIABETIC KETOACIDOSIS [None]
  - DIABETIC NEPHROPATHY [None]
  - DRUG ABUSE [None]
  - TYPE 1 DIABETES MELLITUS [None]
  - TYPE 2 DIABETES MELLITUS [None]
